FAERS Safety Report 10931304 (Version 1)
Quarter: 2015Q1

REPORT INFORMATION
  Report Type: Spontaneous
  Country: US (occurrence: US)
  Receive Date: 20150319
  Receipt Date: 20150319
  Transmission Date: 20150721
  Serious: No
  Sender: FDA-Public Use
  Company Number: US-SHIONOGI, INC-2014001202

PATIENT
  Sex: Female

DRUGS (2)
  1. VAGIFEM [Concomitant]
     Active Substance: ESTRADIOL
     Indication: PRODUCT USED FOR UNKNOWN INDICATION
     Dosage: UNK
     Route: 065
  2. OSPHENA [Suspect]
     Active Substance: OSPEMIFENE
     Indication: PRODUCT USED FOR UNKNOWN INDICATION
     Dosage: UNK
     Route: 065

REACTIONS (8)
  - Breast discomfort [Recovered/Resolved]
  - Back pain [Unknown]
  - Sleep disorder [Unknown]
  - Breast enlargement [Recovered/Resolved]
  - Hot flush [Unknown]
  - Breast pain [Recovered/Resolved]
  - Therapeutic response unexpected [None]
  - Hyperhidrosis [Unknown]
